FAERS Safety Report 7270051-0 (Version None)
Quarter: 2010Q4

REPORT INFORMATION
  Report Type: 
  Country: None (occurrence: None)
  Receive Date: 20101130
  Receipt Date: 20090826
  Transmission Date: 20110411
  Serious: Yes (Hospitalization, Other)
  Sender: FDA-Public Use
  Company Number: 2009-194843-NL

PATIENT
  Age: 31 Year
  Sex: Female
  Weight: 64.8644 kg

DRUGS (25)
  1. NUVARING [Suspect]
     Indication: ACNE
     Dosage: 1 DF
     Dates: start: 20080301, end: 20081215
  2. NUVARING [Suspect]
     Indication: MENSTRUATION IRREGULAR
     Dosage: 1 DF
     Dates: start: 20080301, end: 20081215
  3. NUVARING [Suspect]
     Indication: METABOLIC DISORDER
     Dosage: 1 DF
     Dates: start: 20080301, end: 20081215
  4. NUVARING [Suspect]
     Indication: PREMENSTRUAL SYNDROME
     Dosage: 1 DF
     Dates: start: 20080301, end: 20081215
  5. ESTROGENIC SUBSTANCE [Suspect]
     Indication: ACNE
     Dates: start: 20080101, end: 20080101
  6. ZYRTEC [Concomitant]
  7. TYLENOL SINUS [Concomitant]
  8. FLONASE [Concomitant]
  9. FLAGYL [Concomitant]
  10. CLARITIN [Concomitant]
  11. METHYLPREDNISOLONE ACETATE [Concomitant]
  12. PAROXETINE HCL [Concomitant]
  13. AZITHROMYCIN [Concomitant]
  14. TRANSDERM SCOP [Concomitant]
  15. ESTRADIOL [Concomitant]
  16. PROVENTIL [Concomitant]
  17. AVELOX [Concomitant]
  18. METRONIDAZOLE [Concomitant]
  19. HYDROCODONE BITARTRATE + ACETAMINOPHEN [Concomitant]
  20. TYLENOL COLD [Concomitant]
  21. ALBUTEROL INHALER [Concomitant]
  22. AFRIN [Concomitant]
  23. PRILOSEC [Concomitant]
  24. DORYX [Concomitant]
  25. FLUTICASONE PROPIONATE [Concomitant]

REACTIONS (3)
  - DEEP VEIN THROMBOSIS [None]
  - METRORRHAGIA [None]
  - PULMONARY EMBOLISM [None]
